FAERS Safety Report 8332343-3 (Version None)
Quarter: 2012Q2

REPORT INFORMATION
  Report Type: 
  Country: None (occurrence: None)
  Receive Date: 20120430
  Receipt Date: 20120413
  Transmission Date: 20120825
  Serious: Yes (Hospitalization)
  Sender: FDA-Public Use
  Company Number: TCI2012A01424

PATIENT
  Age: 78 Year
  Sex: Female

DRUGS (4)
  1. LANSOPRAZOLE [Suspect]
     Indication: GASTRIC ULCER
     Dosage: 15 MG (15 MG, 1 IN 1 D) PER ORAL
     Route: 048
     Dates: start: 20110531, end: 20120228
  2. BLOPRESS (CANDESARTAN CILEXETIL) [Concomitant]
  3. VERAPAMIL HYDROCHLORIDE [Concomitant]
  4. BISOPROLOL FUMARATE [Concomitant]

REACTIONS (3)
  - OEDEMA [None]
  - COLITIS MICROSCOPIC [None]
  - HYPOALBUMINAEMIA [None]
